FAERS Safety Report 4552052-6 (Version None)
Quarter: 2005Q1

REPORT INFORMATION
  Report Type: 
  Country: None (occurrence: None)
  Receive Date: 20050112
  Receipt Date: 20041228
  Transmission Date: 20050727
  Serious: No
  Sender: FDA-Public Use
  Company Number: 9623

PATIENT

DRUGS (6)
  1. VINCRISTINE [Suspect]
     Indication: NON-HODGKIN'S LYMPHOMA
  2. DOXORUBICIN [Suspect]
     Indication: NON-HODGKIN'S LYMPHOMA
  3. METHOTREXATE [Suspect]
     Indication: NON-HODGKIN'S LYMPHOMA
  4. DAUNRUBICIN [Suspect]
     Indication: NON-HODGKIN'S LYMPHOMA
  5. CYCLOPHOSPHAMIDE [Suspect]
     Indication: NON-HODGKIN'S LYMPHOMA
  6. PREDNISONE [Suspect]
     Indication: NON-HODGKIN'S LYMPHOMA

REACTIONS (1)
  - GASTROINTESTINAL DISORDER [None]
